FAERS Safety Report 8932367 (Version 4)
Quarter: 2013Q1

REPORT INFORMATION
  Report Type: Spontaneous
  Country: US (occurrence: US)
  Receive Date: 20121128
  Receipt Date: 20130128
  Transmission Date: 20140127
  Serious: Yes (Hospitalization, Other)
  Sender: FDA-Public Use
  Company Number: PHEH2012US023165

PATIENT
  Age: 26 Year
  Sex: Female
  Weight: 78.5 kg

DRUGS (2)
  1. GILENYA [Suspect]
     Indication: MULTIPLE SCLEROSIS
     Dosage: 0.5 MG, QD
     Route: 048
     Dates: start: 201202, end: 20121114
  2. ANTIDEPRESSANTS [Concomitant]

REACTIONS (16)
  - Grand mal convulsion [Recovered/Resolved]
  - Loss of consciousness [Recovered/Resolved]
  - Amnesia [Unknown]
  - Confusional state [Unknown]
  - Muscle rigidity [Unknown]
  - Balance disorder [Unknown]
  - Blood calcium decreased [Unknown]
  - Blood urea decreased [Unknown]
  - CSF glucose increased [Unknown]
  - Monocyte count increased [Unknown]
  - Monocyte percentage increased [Unknown]
  - Neutrophil percentage increased [Unknown]
  - Neutrophil count increased [Unknown]
  - Blood glucose increased [Unknown]
  - Lymphocyte count decreased [Unknown]
  - Lymphocyte percentage decreased [Unknown]
